FAERS Safety Report 5971599-9 (Version None)
Quarter: 2008Q4

REPORT INFORMATION
  Report Type: 
  Country: None (occurrence: None)
  Receive Date: 20081126
  Receipt Date: 20081126
  Transmission Date: 20090506
  Serious: Yes (Other)
  Sender: FDA-Public Use
  Company Number: None

PATIENT
  Sex: Female
  Weight: 72.5755 kg

DRUGS (1)
  1. XANAX [Suspect]
     Indication: DEPRESSION
     Dosage: 2MG 3 TIMES DL
     Dates: start: 19870101, end: 20080101

REACTIONS (7)
  - DELUSION [None]
  - DISTURBANCE IN ATTENTION [None]
  - EYE DISORDER [None]
  - HEARING IMPAIRED [None]
  - MUSCLE SPASMS [None]
  - NERVOUS SYSTEM DISORDER [None]
  - PAIN IN EXTREMITY [None]
